FAERS Safety Report 9964749 (Version 1)
Quarter: 2014Q1

REPORT INFORMATION
  Report Type: Spontaneous
  Country: US (occurrence: US)
  Receive Date: 20140305
  Receipt Date: 20140305
  Transmission Date: 20141002
  Serious: No
  Sender: FDA-Public Use
  Company Number: US-AMGEN-USASP2014000262

PATIENT
  Age: 68 Year
  Sex: Male
  Weight: 230 kg

DRUGS (8)
  1. ENBREL [Suspect]
     Indication: PRODUCT USED FOR UNKNOWN INDICATION
     Dosage: 50 MG, QWK
     Route: 065
  2. CELEBREX [Concomitant]
     Dosage: 200 MG, UNK
  3. METHOTREXATE [Concomitant]
     Dosage: 2.5 MG, UNK
  4. LIPITOR [Concomitant]
     Dosage: 40 MG, UNK
  5. PREVACID [Concomitant]
     Dosage: 15 MG, UNK
  6. ASPIRIN LOW [Concomitant]
     Dosage: 81 MG, UNK
  7. TYLENOL                            /00020001/ [Concomitant]
     Dosage: 650 MG, Q8H
  8. METFORMIN [Concomitant]
     Dosage: 500 MG, UNK

REACTIONS (2)
  - Musculoskeletal pain [Unknown]
  - Blood glucose increased [Unknown]
